FAERS Safety Report 6816166-X (Version None)
Quarter: 2010Q3

REPORT INFORMATION
  Report Type: 
  Country: None (occurrence: None)
  Receive Date: 20100705
  Receipt Date: 20100621
  Transmission Date: 20110219
  Serious: Yes (Other)
  Sender: FDA-Public Use
  Company Number: TR-RANBAXY-2010RR-34335

PATIENT
  Age: 31 Year
  Sex: Female

DRUGS (5)
  1. VENLAFAXINE [Suspect]
     Indication: MAJOR DEPRESSION
     Dosage: 150 MG, UNK
  2. VENLAFAXINE [Suspect]
     Dosage: UNK
  3. ESCITALOPRAM [Suspect]
     Dosage: 10 MG, UNK
  4. FLUOXETINE [Suspect]
     Dosage: 20 MG, UNK
  5. VENLAFAXINE [Concomitant]
     Dosage: 37.5 MG, UNK

REACTIONS (1)
  - BRUXISM [None]
